FAERS Safety Report 5328767-9 (Version None)
Quarter: 2007Q2

REPORT INFORMATION
  Report Type: 
  Country: None (occurrence: None)
  Receive Date: 20070516
  Receipt Date: 20070516
  Transmission Date: 20071010
  Serious: Yes (Hospitalization)
  Sender: FDA-Public Use
  Company Number: None

PATIENT
  Age: 76 Year
  Sex: Male
  Weight: 108 kg

DRUGS (10)
  1. COUMADIN [Suspect]
     Indication: ATRIAL FIBRILLATION
     Dosage: DAILY PO   LONG-TERM
     Route: 048
  2. TOPROL-XL [Concomitant]
  3. ASPIRIN [Concomitant]
  4. FUROSEMIDE [Concomitant]
  5. POTASSIUM CHLORIDE [Concomitant]
  6. DILTIAZEM CD [Concomitant]
  7. GLIPIZIDE [Concomitant]
  8. LISINOPRIL [Concomitant]
  9. LIPITOR [Concomitant]
  10. METFORMIN HCL [Concomitant]

REACTIONS (9)
  - ARTERIOVENOUS MALFORMATION [None]
  - ASTHENIA [None]
  - COLONIC POLYP [None]
  - DYSPNOEA [None]
  - HAEMATOCRIT DECREASED [None]
  - HAEMOGLOBIN DECREASED [None]
  - HYPOTENSION [None]
  - INTERNATIONAL NORMALISED RATIO INCREASED [None]
  - OCCULT BLOOD POSITIVE [None]
